FAERS Safety Report 13656956 (Version 2)
Quarter: 2017Q2

REPORT INFORMATION
  Report Type: Report from Study
  Country: CA (occurrence: CA)
  Receive Date: 20170615
  Receipt Date: 20170623
  Transmission Date: 20170830
  Serious: Yes (Hospitalization, Other)
  Sender: FDA-Public Use
  Company Number: CA-AMGEN-CANSL2017088540

PATIENT
  Age: 75 Year
  Sex: Male

DRUGS (8)
  1. ASA [Concomitant]
     Active Substance: ASPIRIN
     Dosage: 81 MG, UNK
  2. ACETAMINOPHEN. [Concomitant]
     Active Substance: ACETAMINOPHEN
     Dosage: UNK
  3. FLOMAX [Concomitant]
     Active Substance: TAMSULOSIN HYDROCHLORIDE
     Dosage: UNK
  4. ENBREL [Suspect]
     Active Substance: ETANERCEPT
     Indication: RHEUMATOID ARTHRITIS
     Dosage: 25 MG, UNK
     Route: 065
     Dates: end: 20170604
  5. PPI [Concomitant]
     Active Substance: UNSPECIFIED INGREDIENT
     Dosage: UNK
  6. PREDNISONE. [Concomitant]
     Active Substance: PREDNISONE
     Dosage: 5 MG, QD
  7. APIXABAN [Concomitant]
     Active Substance: APIXABAN
     Dosage: UNK
  8. HYDROMORPHONE [Concomitant]
     Active Substance: HYDROMORPHONE
     Dosage: UNK

REACTIONS (14)
  - Aortic aneurysm [Unknown]
  - Wound secretion [Unknown]
  - Nausea [Unknown]
  - Cerebrovascular accident [Unknown]
  - Knee arthroplasty [Unknown]
  - Drug dose omission [Unknown]
  - Benign prostatic hyperplasia [Unknown]
  - Surgery [Unknown]
  - Cardiac murmur [Unknown]
  - Staphylococcal bacteraemia [Unknown]
  - Arthritis infective [Unknown]
  - Hernia [Unknown]
  - Skin ulcer [Unknown]
  - Gastrooesophageal reflux disease [Unknown]

NARRATIVE: CASE EVENT DATE: 201702
